FAERS Safety Report 7070658-X (Version None)
Quarter: 2010Q4

REPORT INFORMATION
  Report Type: 
  Country: None (occurrence: None)
  Receive Date: 20101029
  Receipt Date: 20101020
  Transmission Date: 20110411
  Serious: Yes (Other)
  Sender: FDA-Public Use
  Company Number: US-PFIZER INC-2010133820

PATIENT
  Age: 55 Year
  Sex: Female

DRUGS (3)
  1. DETROL LA [Suspect]
     Dosage: UNK
     Dates: start: 19980101
  2. METOPROLOL [Suspect]
     Dosage: UNK
  3. DARIFENACIN [Suspect]
     Dosage: UNK

REACTIONS (6)
  - DRUG INEFFECTIVE [None]
  - DRY EYE [None]
  - FATIGUE [None]
  - HYPERTENSION [None]
  - POLLAKIURIA [None]
  - WEIGHT INCREASED [None]
